FAERS Safety Report 7203556-9 (Version None)
Quarter: 2010Q4

REPORT INFORMATION
  Report Type: 
  Country: None (occurrence: None)
  Receive Date: 20101230
  Receipt Date: 20101215
  Transmission Date: 20110411
  Serious: Yes (Hospitalization)
  Sender: FDA-Public Use
  Company Number: US-CELGENEUS-163-21880-10111989

PATIENT
  Sex: Male

DRUGS (1)
  1. REVLIMID [Suspect]
     Route: 048
     Dates: start: 20100930

REACTIONS (4)
  - CARDIAC DISORDER [None]
  - FATIGUE [None]
  - FULL BLOOD COUNT DECREASED [None]
  - PNEUMONIA [None]
